FAERS Safety Report 20901851 (Version 1)
Quarter: 2022Q2

REPORT INFORMATION
  Report Type: Spontaneous
  Country: US (occurrence: None)
  Receive Date: 20220601
  Receipt Date: 20220601
  Transmission Date: 20220721
  Serious: Yes (Other)
  Sender: FDA-Public Use
  Company Number: None

PATIENT
  Age: 57 Year
  Sex: Male

DRUGS (2)
  1. AMBRISENTAN [Suspect]
     Active Substance: AMBRISENTAN
     Indication: Pulmonary arterial hypertension
     Dosage: FREQUENCY : DAILY;?
     Route: 048
     Dates: start: 20220221
  2. TADALAFIL [Concomitant]
     Active Substance: TADALAFIL
     Dates: start: 20220221

REACTIONS (6)
  - Abdominal distension [None]
  - Oedema peripheral [None]
  - Hypotension [None]
  - Pruritus [None]
  - Upper-airway cough syndrome [None]
  - Condition aggravated [None]

NARRATIVE: CASE EVENT DATE: 20220601
